FAERS Safety Report 7139435-5 (Version None)
Quarter: 2010Q4

REPORT INFORMATION
  Report Type: 
  Country: None (occurrence: None)
  Receive Date: 20101206
  Receipt Date: 20101130
  Transmission Date: 20110411
  Serious: Yes (Disabling, Other)
  Sender: FDA-Public Use
  Company Number: US-PFIZER INC-2010160646

PATIENT
  Sex: Female

DRUGS (1)
  1. ANTIVERT [Suspect]
     Indication: VERTIGO

REACTIONS (2)
  - DEAFNESS [None]
  - EAR INFECTION FUNGAL [None]
